FAERS Safety Report 4447845-X (Version None)
Quarter: 2004Q3

REPORT INFORMATION
  Report Type: 
  Country: None (occurrence: None)
  Receive Date: 20040819
  Receipt Date: 20040126
  Transmission Date: 20050211
  Serious: Yes (Other)
  Sender: FDA-Public Use
  Company Number: PHEH2004US00611

PATIENT
  Age: 62 Year
  Sex: Female
  Weight: 91.2 kg

DRUGS (3)
  1. BENAZEPRIL HCL [Suspect]
     Indication: HYPERTENSION
     Dosage: 10 MG, QD, ORAL
     Route: 048
     Dates: start: 20020703, end: 20031201
  2. SYNTHROID [Concomitant]
  3. TOFRANIL [Concomitant]

REACTIONS (10)
  - ALOPECIA [None]
  - BIOPSY [None]
  - ERYTHEMA [None]
  - EYELID OEDEMA [None]
  - PSORIASIS [None]
  - RASH [None]
  - RASH MACULAR [None]
  - SEBORRHOEA [None]
  - SWELLING FACE [None]
  - THROAT TIGHTNESS [None]
